FAERS Safety Report 6770861-X (Version None)
Quarter: 2010Q2

REPORT INFORMATION
  Report Type: 
  Country: None (occurrence: None)
  Receive Date: 20100614
  Receipt Date: 20100604
  Transmission Date: 20101027
  Serious: Yes (Hospitalization)
  Sender: FDA-Public Use
  Company Number: 2010AL003394

PATIENT
  Age: 31 Year
  Sex: Male

DRUGS (10)
  1. FERROUS SULFATE ELIXIR         (FERROUS SULFATE ELIXIR [Suspect]
     Indication: IRON DEFICIENCY ANAEMIA
     Dosage: 600 MG; QD; PO
     Route: 048
     Dates: start: 20080610, end: 20080714
  2. CLOZARIL [Concomitant]
  3. LANSOPRAZOLE [Concomitant]
  4. LACTUOSE [Concomitant]
  5. AMISULPRIDE [Concomitant]
  6. IPRATROPIUM [Concomitant]
  7. FYBOGEL [Concomitant]
  8. VALPROIC ACID [Concomitant]
  9. ASCORBIC ACID [Concomitant]
  10. BECLOMETHASONE DIPROPIONATE [Concomitant]

REACTIONS (4)
  - CONDITION AGGRAVATED [None]
  - CONSTIPATION [None]
  - GASTROINTESTINAL NECROSIS [None]
  - INTESTINAL STOMA [None]
